FAERS Safety Report 17128455 (Version 1)
Quarter: 2019Q4

REPORT INFORMATION
  Report Type: Spontaneous
  Country: CA (occurrence: CA)
  Receive Date: 20191209
  Receipt Date: 20191209
  Transmission Date: 20200122
  Serious: Yes (Other)
  Sender: FDA-Public Use
  Company Number: CA-PFIZER INC-2019523771

PATIENT
  Age: 52 Year
  Sex: Male

DRUGS (3)
  1. FENTANYL CITRATE. [Suspect]
     Active Substance: FENTANYL CITRATE
     Dosage: UNK
     Route: 042
  2. METHADONE [Suspect]
     Active Substance: METHADONE HYDROCHLORIDE
     Dosage: UNK
     Route: 042
  3. HEROIN [Suspect]
     Active Substance: DIAMORPHINE
     Dosage: UNK
     Route: 065

REACTIONS (9)
  - Dyspnoea [Recovered/Resolved]
  - Muscle rigidity [Recovered/Resolved]
  - Finger deformity [Recovered/Resolved]
  - Cyanosis [Recovered/Resolved]
  - Drug abuse [Recovered/Resolved]
  - Elbow deformity [Recovered/Resolved]
  - Musculoskeletal stiffness [Recovered/Resolved]
  - Intentional product misuse [Unknown]
  - Unresponsive to stimuli [Recovered/Resolved]
